FAERS Safety Report 7199771-3 (Version None)
Quarter: 2010Q4

REPORT INFORMATION
  Report Type: 
  Country: None (occurrence: None)
  Receive Date: 20101228
  Receipt Date: 20100714
  Transmission Date: 20110411
  Serious: No
  Sender: FDA-Public Use
  Company Number: US-KINGPHARMUSA00001-K201000883

PATIENT
  Age: 78 Year
  Sex: Female

DRUGS (1)
  1. CORGARD [Suspect]
     Dosage: 10 MG, QD
     Route: 048

REACTIONS (1)
  - FOREIGN BODY [None]
